FAERS Safety Report 16104068 (Version 1)
Quarter: 2019Q1

REPORT INFORMATION
  Report Type: Report from Study
  Country: US (occurrence: US)
  Receive Date: 20190322
  Receipt Date: 20190322
  Transmission Date: 20190418
  Serious: Yes (Other)
  Sender: FDA-Public Use
  Company Number: US-HORIZON-KRY-0133-2019

PATIENT
  Age: 39 Year
  Sex: Male

DRUGS (1)
  1. KRYSTEXXA [Suspect]
     Active Substance: PEGLOTICASE
     Indication: GOUT
     Dosage: EVERY 2 WEEKS
     Dates: start: 20190301, end: 20190315

REACTIONS (4)
  - Anxiety [Recovered/Resolved]
  - Heart rate increased [Recovered/Resolved]
  - Drug effect decreased [Unknown]
  - Blood pressure increased [Recovered/Resolved]

NARRATIVE: CASE EVENT DATE: 20190315
